FAERS Safety Report 5087265-0 (Version None)
Quarter: 2006Q3

REPORT INFORMATION
  Report Type: 
  Country: None (occurrence: None)
  Receive Date: 20060821
  Receipt Date: 20060807
  Transmission Date: 20061208
  Serious: Yes (Hospitalization, Other)
  Sender: FDA-Public Use
  Company Number: GXKR2006GB04416

PATIENT
  Age: 53 Year
  Sex: Female

DRUGS (2)
  1. ASPIRIN [Suspect]
     Dosage: 75 MG, QD; ORAL
     Route: 048
     Dates: end: 20060501
  2. GINKGO BILOBA (GINKGO BILOBA) UNKNOWN [Suspect]
     Indication: ANTIPLATELET THERAPY
     Dosage: 120 MG, QD; ORAL
     Route: 048

REACTIONS (2)
  - DRUG INTERACTION [None]
  - HAEMORRHAGE [None]
